FAERS Safety Report 11194609 (Version 1)
Quarter: 2015Q2

REPORT INFORMATION
  Report Type: Spontaneous
  Country: IT (occurrence: IT)
  Receive Date: 20150617
  Receipt Date: 20150617
  Transmission Date: 20150821
  Serious: Yes (Other)
  Sender: FDA-Public Use
  Company Number: IT-SYMPLMED PHARMACEUTICALS-2015SYM00143

PATIENT
  Age: 59 Year
  Sex: Male

DRUGS (1)
  1. ACEON [Suspect]
     Active Substance: PERINDOPRIL ERBUMINE
     Indication: ESSENTIAL HYPERTENSION
     Dosage: 5 MG, QD
     Route: 048
     Dates: start: 20140301, end: 20150220

REACTIONS (3)
  - Urticaria [Recovering/Resolving]
  - Swollen tongue [Recovering/Resolving]
  - Dermatitis acneiform [Recovering/Resolving]

NARRATIVE: CASE EVENT DATE: 20150220
